FAERS Safety Report 5487257-3 (Version None)
Quarter: 2007Q4

REPORT INFORMATION
  Report Type: 
  Country: None (occurrence: None)
  Receive Date: 20071015
  Receipt Date: 20071002
  Transmission Date: 20080405
  Serious: Yes (Hospitalization)
  Sender: FDA-Public Use
  Company Number: 2007US002410

PATIENT
  Age: 50 Year
  Sex: Female

DRUGS (15)
  1. PROGRAF(TACROLIMUS CAPSULES) PROGRAF(TACROLIMUIS) CAPSULE [Suspect]
     Indication: RENAL TRANSPLANT
     Dosage: BID, ORAL
     Route: 048
  2. MYCOPHENOLATE MOFETIL [Suspect]
     Indication: RENAL TRANSPLANT
     Dosage: 1000 MG, BID, ORAL
     Route: 048
     Dates: start: 20050908
  3. PREDNISONE TAB [Suspect]
     Indication: RENAL TRANSPLANT
     Dosage: 10 MG, D, ORAL
     Route: 048
     Dates: start: 20050908
  4. ALOPURINOL [Concomitant]
  5. ASPIRIN [Concomitant]
  6. LIPITOR [Concomitant]
  7. PLAVIX [Concomitant]
  8. COLACE (DOCUSATE SODIUM) [Concomitant]
  9. ZETIA [Concomitant]
  10. LASIX [Concomitant]
  11. NOVOLOG [Concomitant]
  12. LANTUS [Concomitant]
  13. MAGNESIUM OXIDE (MAGNESIUM OXIDE) [Concomitant]
  14. MULTIVITAMIN [Concomitant]
  15. BACTRIM (TRIMETHOPRIM) [Concomitant]

REACTIONS (1)
  - SOFT TISSUE INFLAMMATION [None]
